FAERS Safety Report 21506719 (Version 2)
Quarter: 2022Q4

REPORT INFORMATION
  Report Type: Spontaneous
  Country: JP (occurrence: JP)
  Receive Date: 20221026
  Receipt Date: 20221031
  Transmission Date: 20230112
  Serious: Yes (Hospitalization)
  Sender: FDA-Public Use
  Company Number: JP-NOVARTISPH-NVSJ2022JP099201

PATIENT
  Sex: Male
  Weight: 65.6 kg

DRUGS (1)
  1. AMOXICILLIN [Suspect]
     Active Substance: AMOXICILLIN
     Indication: Syphilis
     Dosage: 1500 MG
     Route: 048

REACTIONS (1)
  - Jarisch-Herxheimer reaction [Recovering/Resolving]
